FAERS Safety Report 22389877 (Version 4)
Quarter: 2023Q2

REPORT INFORMATION
  Report Type: Spontaneous
  Country: US (occurrence: US)
  Receive Date: 20230531
  Receipt Date: 20230608
  Transmission Date: 20230721
  Serious: No
  Sender: FDA-Public Use
  Company Number: US-Dermavant-000626

PATIENT
  Age: 48 Year
  Sex: Male

DRUGS (2)
  1. VTAMA [Suspect]
     Active Substance: TAPINAROF
     Indication: Psoriasis
     Dosage: ONCE DAILY / 1% / 60G
     Route: 061
     Dates: start: 20230428
  2. TREMFYA [Concomitant]
     Active Substance: GUSELKUMAB
     Dates: start: 20220101

REACTIONS (3)
  - Skin discolouration [Not Recovered/Not Resolved]
  - Application site pruritus [Not Recovered/Not Resolved]
  - Application site dryness [Not Recovered/Not Resolved]

NARRATIVE: CASE EVENT DATE: 20230505
